FAERS Safety Report 23534038 (Version 1)
Quarter: 2024Q1

REPORT INFORMATION
  Report Type: Spontaneous
  Country: CA (occurrence: CA)
  Receive Date: 20240216
  Receipt Date: 20240216
  Transmission Date: 20240410
  Serious: Yes (Hospitalization)
  Sender: FDA-Public Use
  Company Number: CA-HLS-202400266

PATIENT
  Age: 31 Year
  Sex: Female
  Weight: 44 kg

DRUGS (8)
  1. CLOZARIL [Suspect]
     Active Substance: CLOZAPINE
     Indication: Schizoaffective disorder bipolar type
     Dosage: ONCE?AMOUNT: 425 MILLIGRAM?TABLETS DOSAGE FORM
     Route: 048
  2. DIVALPROEX SODIUM [Concomitant]
     Active Substance: DIVALPROEX SODIUM
     Dosage: NOT SPECIFIED DOSAGE FORM
     Route: 065
  3. LACTULOSE [Concomitant]
     Active Substance: LACTULOSE
     Route: 065
  4. LORAZEPAM [Concomitant]
     Active Substance: LORAZEPAM
     Dosage: TABLETS DOSAGE FORM
     Route: 065
  5. LOXAPINE [Concomitant]
     Active Substance: LOXAPINE
     Dosage: NOT SPECIFIED DOSAGE FORM
     Route: 065
  6. MULTIVITAMIN MULTIMINERAL [Concomitant]
     Route: 065
  7. SENNOSIDES [Concomitant]
     Active Substance: SENNOSIDES
     Dosage: NOT SPECIFIED DOSAGE FORM
     Route: 065
  8. THIAMINE [Concomitant]
     Active Substance: THIAMINE
     Dosage: TABLETS DOSAGE FORM
     Route: 065

REACTIONS (5)
  - Depressed level of consciousness [Recovered/Resolved]
  - Hypotension [Recovered/Resolved]
  - Salivary hypersecretion [Recovered/Resolved]
  - Tachycardia [Recovered/Resolved]
  - Toxicity to various agents [Recovered/Resolved]
